FAERS Safety Report 10967057 (Version 6)
Quarter: 2015Q3

REPORT INFORMATION
  Report Type: Report from Study
  Country: US (occurrence: US)
  Receive Date: 20150330
  Receipt Date: 20150922
  Transmission Date: 20151125
  Serious: Yes (Other)
  Sender: FDA-Public Use
  Company Number: US-SA-2015SA036149

PATIENT
  Age: 55 Year
  Sex: Female

DRUGS (3)
  1. LEMTRADA [Suspect]
     Active Substance: ALEMTUZUMAB
     Indication: MULTIPLE SCLEROSIS
     Route: 041
     Dates: start: 20150309, end: 20150313
  2. LASIX [Suspect]
     Active Substance: FUROSEMIDE
     Indication: OEDEMA PERIPHERAL
     Route: 065
  3. LASIX [Suspect]
     Active Substance: FUROSEMIDE
     Indication: PERIPHERAL SWELLING
     Route: 065

REACTIONS (24)
  - Postmenopausal haemorrhage [Recovered/Resolved]
  - Oligomenorrhoea [Unknown]
  - Urinary tract infection [Not Recovered/Not Resolved]
  - Weight increased [Unknown]
  - Urinary incontinence [Unknown]
  - Pyrexia [Unknown]
  - Gait disturbance [Unknown]
  - Temperature difference of extremities [Unknown]
  - Nuclear magnetic resonance imaging abnormal [Unknown]
  - Oedema peripheral [Not Recovered/Not Resolved]
  - Menorrhagia [Recovered/Resolved]
  - Joint swelling [Unknown]
  - Fluid retention [Unknown]
  - White blood cell count decreased [Not Recovered/Not Resolved]
  - Tachypnoea [Recovered/Resolved]
  - Influenza like illness [Unknown]
  - Dysmenorrhoea [Recovered/Resolved]
  - Muscular weakness [Not Recovered/Not Resolved]
  - Skin odour abnormal [Unknown]
  - Hyperhidrosis [Unknown]
  - Peripheral swelling [Unknown]
  - Chills [Unknown]
  - Micturition urgency [Not Recovered/Not Resolved]
  - Tremor [Unknown]

NARRATIVE: CASE EVENT DATE: 2015
